FAERS Safety Report 21087496 (Version 1)
Quarter: 2022Q3

REPORT INFORMATION
  Report Type: Report from Study
  Country: US (occurrence: US)
  Receive Date: 20220715
  Receipt Date: 20220715
  Transmission Date: 20221026
  Serious: Yes (Hospitalization)
  Sender: FDA-Public Use
  Company Number: US-NOVARTISPH-NVSC2022US157395

PATIENT
  Age: 67 Year
  Sex: Male

DRUGS (1)
  1. ENTRESTO [Suspect]
     Active Substance: SACUBITRIL\VALSARTAN
     Indication: Temperature intolerance
     Dosage: 24 MG, QID (24-26 MG)
     Route: 048

REACTIONS (2)
  - Cardiac disorder [Unknown]
  - Product use in unapproved indication [Unknown]
